FAERS Safety Report 5270330-2 (Version None)
Quarter: 2007Q1

REPORT INFORMATION
  Report Type: 
  Country: None (occurrence: None)
  Receive Date: 20070320
  Receipt Date: 20070308
  Transmission Date: 20070707
  Serious: Yes (Life-Threatening, Hospitalization, Disabling)
  Sender: FDA-Public Use
  Company Number: GB-PFIZER INC-2006108320

PATIENT
  Age: 83 Year
  Sex: Female

DRUGS (3)
  1. PREDNISOLONE [Suspect]
     Indication: POLYMYALGIA RHEUMATICA
     Route: 065
  2. FELODIPINE [Concomitant]
     Route: 065
  3. URSODIOL [Concomitant]
     Route: 065

REACTIONS (3)
  - CRANIAL NERVE PALSIES MULTIPLE [None]
  - OPTIC NEUROPATHY [None]
  - SINUSITIS ASPERGILLUS [None]
